FAERS Safety Report 4520450-2 (Version None)
Quarter: 2004Q4

REPORT INFORMATION
  Report Type: 
  Country: None (occurrence: None)
  Receive Date: 20041203
  Receipt Date: 20041124
  Transmission Date: 20050328
  Serious: Yes (Other)
  Sender: FDA-Public Use
  Company Number: S04-USA-07554-01

PATIENT
  Age: 58 Year
  Sex: Female

DRUGS (2)
  1. LEXAPRO [Suspect]
     Indication: ANXIETY
     Dates: start: 20040123, end: 20040706
  2. LEXAPRO [Suspect]
     Indication: DEPRESSION
     Dates: start: 20040123, end: 20040706

REACTIONS (2)
  - NEOPLASM RECURRENCE [None]
  - OVARIAN CANCER [None]
